FAERS Safety Report 6453828-0 (Version None)
Quarter: 2009Q4

REPORT INFORMATION
  Report Type: 
  Country: None (occurrence: None)
  Receive Date: 20091124
  Receipt Date: 20091117
  Transmission Date: 20100525
  Serious: Yes (Hospitalization)
  Sender: FDA-Public Use
  Company Number: CA-ABBOTT-09P-028-0497409-00

PATIENT
  Sex: Female
  Weight: 72.64 kg

DRUGS (5)
  1. HUMIRA [Suspect]
     Indication: CROHN'S DISEASE
     Dosage: 160MG INITIAL
     Route: 058
     Dates: start: 20081204, end: 20081204
  2. HUMIRA [Suspect]
     Dosage: 80 MG WEEK 2
     Route: 058
  3. HUMIRA [Suspect]
     Route: 058
     Dates: end: 20090723
  4. METHOTREXATE [Concomitant]
     Indication: DRUG USE FOR UNKNOWN INDICATION
  5. FOLIC ACID [Concomitant]
     Indication: DRUG USE FOR UNKNOWN INDICATION

REACTIONS (7)
  - ABDOMINAL PAIN [None]
  - DRUG INEFFECTIVE [None]
  - ERYTHEMA [None]
  - FEELING ABNORMAL [None]
  - INFLAMMATION [None]
  - PYODERMA GANGRENOSUM [None]
  - WOUND SECRETION [None]
